FAERS Safety Report 13411759 (Version 4)
Quarter: 2023Q2

REPORT INFORMATION
  Report Type: Spontaneous
  Country: US (occurrence: US)
  Receive Date: 20170406
  Receipt Date: 20230626
  Transmission Date: 20230722
  Serious: No
  Sender: FDA-Public Use
  Company Number: US-JNJFOC-20170302621

PATIENT
  Sex: Male

DRUGS (10)
  1. RISPERDAL [Suspect]
     Active Substance: RISPERIDONE
     Indication: Autism spectrum disorder
     Dosage: VARYING DOSES OF 0.5 MG, 1 MG AND 2 MG.
     Route: 048
     Dates: start: 20041129, end: 20050712
  2. RISPERDAL [Suspect]
     Active Substance: RISPERIDONE
     Indication: Depression
     Route: 048
     Dates: start: 20080925
  3. RISPERDAL [Suspect]
     Active Substance: RISPERIDONE
     Indication: Generalised anxiety disorder
     Route: 048
     Dates: start: 20090918, end: 20100904
  4. RISPERIDONE [Suspect]
     Active Substance: RISPERIDONE
     Indication: Depression
     Route: 048
     Dates: start: 20041129, end: 20050712
  5. RISPERIDONE [Suspect]
     Active Substance: RISPERIDONE
     Indication: Generalised anxiety disorder
     Route: 048
     Dates: start: 20080925
  6. RISPERIDONE [Suspect]
     Active Substance: RISPERIDONE
     Indication: Autism spectrum disorder
     Route: 048
     Dates: start: 20080926, end: 20100804
  7. RISPERIDONE [Suspect]
     Active Substance: RISPERIDONE
     Route: 048
     Dates: start: 20090918, end: 20100904
  8. RISPERIDONE [Suspect]
     Active Substance: RISPERIDONE
     Indication: Autism spectrum disorder
     Route: 048
  9. RISPERIDONE [Suspect]
     Active Substance: RISPERIDONE
     Indication: Depression
  10. RISPERIDONE [Suspect]
     Active Substance: RISPERIDONE
     Indication: Generalised anxiety disorder

REACTIONS (4)
  - Weight increased [Unknown]
  - Gynaecomastia [Unknown]
  - Emotional distress [Unknown]
  - Drug ineffective [Unknown]
